FAERS Safety Report 15840635 (Version 1)
Quarter: 2019Q1

REPORT INFORMATION
  Report Type: Report from Study
  Country: FR (occurrence: FR)
  Receive Date: 20190118
  Receipt Date: 20190118
  Transmission Date: 20190417
  Serious: Yes (Congenital Anomaly, Other)
  Sender: FDA-Public Use
  Company Number: FR-CELLTRION INC.-2019FR017937

PATIENT

DRUGS (9)
  1. POTASSIUM [Concomitant]
     Active Substance: POTASSIUM
     Dosage: 75 UNK
  2. AMLOR [Concomitant]
     Active Substance: AMLODIPINE BESYLATE
     Dosage: 5 ONCE DAILY (EVENING)
  3. TANGANIL [Concomitant]
     Active Substance: ACETYLLEUCINE
     Dosage: 500 TWICE DAILY (MORNING AND EVENING)
  4. STAGID [Concomitant]
     Active Substance: METFORMIN PAMOATE
     Dosage: 700 TWICE DAILY (MORNING AND EVENING)
  5. CRESTOR [Concomitant]
     Active Substance: ROSUVASTATIN CALCIUM
     Dosage: 5 ONCE DAILY (EVENING)
  6. CORTANCYL [Concomitant]
     Active Substance: PREDNISONE
  7. SECTRAL LP [Concomitant]
     Dosage: 500 ONCE DAILY
  8. INFLECTRA [Suspect]
     Active Substance: INFLIXIMAB-DYYB
     Indication: COLITIS ULCERATIVE
     Dosage: 475 MG, EVERY 8 WEEKS
     Route: 042
     Dates: start: 20160706, end: 20170905
  9. FORTZAAR [Concomitant]
     Active Substance: HYDROCHLOROTHIAZIDE\LOSARTAN POTASSIUM
     Dosage: 100/25 ONCE DAILY (MORNING)

REACTIONS (1)
  - Septic shock [Recovered/Resolved]

NARRATIVE: CASE EVENT DATE: 20171020
